FAERS Safety Report 24713395 (Version 1)
Quarter: 2024Q4

REPORT INFORMATION
  Report Type: Spontaneous
  Country: FR (occurrence: FR)
  Receive Date: 20241209
  Receipt Date: 20241209
  Transmission Date: 20250115
  Serious: Yes (Hospitalization, Other)
  Sender: PFIZER
  Company Number: FR-ROCHE-10000135007

PATIENT
  Age: 41 Year
  Sex: Female
  Weight: 92 kg

DRUGS (9)
  1. CARBOPLATIN [Suspect]
     Active Substance: CARBOPLATIN
     Indication: Triple negative breast cancer
     Dosage: LAST DOSE ADMINISTERED PRIOR TO SAE 660 MG. CUMULATIVE FREQUENCY SINCE 1ST ADMINISTERED 2640 MG
     Route: 065
     Dates: start: 20240402, end: 20240606
  2. DOXORUBICIN HYDROCHLORIDE [Suspect]
     Active Substance: DOXORUBICIN HYDROCHLORIDE
     Indication: Triple negative breast cancer
     Dosage: LAST DOSE ADMINISTERED AS 60 MG.CUMULATIVE DOSE SINCE THE 1ST ADMINISTERED AS 240 MG.
     Route: 065
     Dates: start: 20240627, end: 20240903
  3. TIRAGOLUMAB [Suspect]
     Active Substance: TIRAGOLUMAB
     Indication: Triple negative breast cancer
     Dosage: LAST DOSE BEFORE AE ONSET WAS 600 MG. CUMULATIVE DOSE SINCE 1ST ADMINISTERED AS 5400 MG.
     Route: 042
     Dates: start: 20240402, end: 20241023
  4. ATEZOLIZUMAB [Suspect]
     Active Substance: ATEZOLIZUMAB
     Indication: Triple negative breast cancer
     Dosage: LAST DOSE AS 1200 MG. CUMULATIVE DOSE SINCE THE 1ST ADMINISTERED AS 800 MG.
     Route: 042
     Dates: start: 20240402, end: 20241023
  5. CAPECITABINE [Suspect]
     Active Substance: CAPECITABINE
     Indication: Triple negative breast cancer
     Dosage: UNK
     Route: 065
     Dates: start: 20241104
  6. PACLITAXEL [Suspect]
     Active Substance: PACLITAXEL
     Indication: Triple negative breast cancer
     Dosage: LAST DOSE ADMINISTERED BEFORE SAE 200 MG. CUMULATIVE DOSE SINCE 1ST ADMINISTRATION WAS 2000 MG
     Route: 065
     Dates: start: 20240402, end: 20240620
  7. CYCLOPHOSPHAMIDE [Suspect]
     Active Substance: CYCLOPHOSPHAMIDE
     Indication: Triple negative breast cancer
     Dosage: LAST DOSE PRIOR TO SAE WAS 1000 MG. CUMULATIVE DOSE SINCE 1ST ADMINISTERED WAS 4600 MG.
     Route: 065
     Dates: start: 20240606, end: 20240903
  8. PAROXETINE [Concomitant]
     Active Substance: PAROXETINE
     Dosage: UNK
     Dates: start: 20241023
  9. NEURONTIN [Concomitant]
     Active Substance: GABAPENTIN
     Dosage: UNK
     Dates: start: 20241023

REACTIONS (2)
  - Myocarditis [Not Recovered/Not Resolved]
  - Off label use [Unknown]

NARRATIVE: CASE EVENT DATE: 20241113
